FAERS Safety Report 7670105-0 (Version None)
Quarter: 2011Q3

REPORT INFORMATION
  Report Type: 
  Country: None (occurrence: None)
  Receive Date: 20110808
  Receipt Date: 20110728
  Transmission Date: 20111222
  Serious: Yes (Other)
  Sender: FDA-Public Use
  Company Number: US-ASTRAZENECA-2011SE45160

PATIENT
  Age: 51 Year
  Sex: Male
  Weight: 104.3 kg

DRUGS (10)
  1. DIAZEPAM [Concomitant]
  2. PAXIL [Concomitant]
  3. CRESTOR [Suspect]
     Indication: HYPERCHOLESTEROLAEMIA
     Route: 048
  4. METFORMIN HCL [Concomitant]
  5. HYDROCODONE [Concomitant]
  6. LOUVASTATIN [Concomitant]
  7. GABAPENTIN [Concomitant]
  8. AMPHETAMINE AND DEXTROAMPHETAMINE SALTS [Concomitant]
  9. DIVALPROEX SODIUM [Concomitant]
  10. KADIAN [Concomitant]

REACTIONS (2)
  - MUSCLE SPASMS [None]
  - BLADDER CANCER [None]
